FAERS Safety Report 15338820 (Version 1)
Quarter: 2018Q3

REPORT INFORMATION
  Report Type: Spontaneous
  Country: US (occurrence: US)
  Receive Date: 20180824
  Receipt Date: 20180824
  Transmission Date: 20181010
  Serious: Yes (Disabling, Other)
  Sender: FDA-Public Use
  Company Number: None

PATIENT
  Age: 88 Year
  Sex: Female
  Weight: 58.06 kg

DRUGS (8)
  1. POLYETHYLENE GLYCOL/3350NF [Concomitant]
  2. RED YEAST RICE [Concomitant]
     Active Substance: DIETARY SUPPLEMENT
  3. LORAZEPAM. [Concomitant]
     Active Substance: LORAZEPAM
  4. SENNA PLUS WITH STOOL SOFTENER [Concomitant]
  5. VALSARTAN?HCTZ 80?12.5MG TAB/HYDROCHLOROTHIAZIDE [Suspect]
     Active Substance: HYDROCHLOROTHIAZIDE\VALSARTAN
     Indication: HYPERTENSION
     Dosage: ?          QUANTITY:1 DF DOSAGE FORM;?
     Route: 048
     Dates: start: 20180510, end: 20180730
  6. LEVOTHYROXINE. [Concomitant]
     Active Substance: LEVOTHYROXINE
  7. MONTELUKAST SODIUM. [Concomitant]
     Active Substance: MONTELUKAST SODIUM
  8. ACETAMINOPHEN. [Concomitant]
     Active Substance: ACETAMINOPHEN

REACTIONS (9)
  - Hypoaesthesia [None]
  - Confusional state [None]
  - Product use issue [None]
  - Product physical issue [None]
  - Headache [None]
  - Dementia [None]
  - Alopecia [None]
  - Neuralgia [None]
  - Pain in extremity [None]

NARRATIVE: CASE EVENT DATE: 20180520
